FAERS Safety Report 8382335-3 (Version None)
Quarter: 2012Q2

REPORT INFORMATION
  Report Type: 
  Country: None (occurrence: None)
  Receive Date: 20120524
  Receipt Date: 20120518
  Transmission Date: 20120825
  Serious: No
  Sender: FDA-Public Use
  Company Number: US-PFIZER INC-2012121646

PATIENT
  Age: 83 Year
  Sex: Female

DRUGS (1)
  1. THIOTHIXENE HCL [Suspect]
     Dosage: 5 MG, UNK

REACTIONS (2)
  - SOCIAL AVOIDANT BEHAVIOUR [None]
  - DRUG INEFFECTIVE [None]
